FAERS Safety Report 5177715-3 (Version None)
Quarter: 2006Q4

REPORT INFORMATION
  Report Type: 
  Country: None (occurrence: None)
  Receive Date: 20061207
  Receipt Date: 20061128
  Transmission Date: 20070319
  Serious: Yes (Other)
  Sender: FDA-Public Use
  Company Number: 2006145738

PATIENT
  Age: 63 Year
  Sex: Female
  Weight: 99.7913 kg

DRUGS (2)
  1. GEODON [Suspect]
     Dosage: 160 MG (80 MG, 2 IN 1 D)
     Dates: start: 20040301, end: 20060501
  2. NEURONTIN [Suspect]
     Dates: start: 20040301

REACTIONS (6)
  - ANOREXIA [None]
  - CEREBROVASCULAR ACCIDENT [None]
  - DYSPNOEA [None]
  - TREMOR [None]
  - VISION BLURRED [None]
  - WEIGHT DECREASED [None]
